FAERS Safety Report 8313488-0 (Version None)
Quarter: 2012Q2

REPORT INFORMATION
  Report Type: 
  Country: None (occurrence: None)
  Receive Date: 20120426
  Receipt Date: 20120424
  Transmission Date: 20120825
  Serious: No
  Sender: FDA-Public Use
  Company Number: US-PFIZER INC-2012102260

PATIENT
  Age: 61 Year
  Sex: Female
  Weight: 65.76 kg

DRUGS (2)
  1. CHANTIX [Suspect]
     Indication: SMOKING CESSATION THERAPY
     Dosage: 0.5MG ONCE
     Route: 048
     Dates: start: 20120424
  2. ALBUTEROL SULFATE [Concomitant]
     Indication: ASTHMA
     Dosage: UNK, DAILY

REACTIONS (2)
  - LUNG DISORDER [None]
  - DYSPHONIA [None]
